FAERS Safety Report 4638664-X (Version None)
Quarter: 2005Q2

REPORT INFORMATION
  Report Type: 
  Country: None (occurrence: None)
  Receive Date: 20050325
  Receipt Date: 20041122
  Transmission Date: 20051028
  Serious: No
  Sender: FDA-Public Use
  Company Number: USA041184414

PATIENT
  Age: 74 Year
  Sex: Female

DRUGS (5)
  1. FORTEO [Suspect]
     Indication: OSTEOPOROSIS
     Dates: start: 20041027
  2. EVISTA [Suspect]
     Indication: OSTEOPOROSIS
  3. MIACALCIN [Concomitant]
  4. VIACTIV [Concomitant]
  5. MULTI-VITAMIN [Concomitant]

REACTIONS (12)
  - ANOREXIA [None]
  - ARTHRALGIA [None]
  - ASTHENIA [None]
  - BACK INJURY [None]
  - BACK PAIN [None]
  - CONSTIPATION [None]
  - CONTUSION [None]
  - DEPRESSION [None]
  - FALL [None]
  - FLANK PAIN [None]
  - MUSCULAR WEAKNESS [None]
  - WEIGHT DECREASED [None]
